FAERS Safety Report 5917953-2 (Version None)
Quarter: 2008Q4

REPORT INFORMATION
  Report Type: 
  Country: None (occurrence: None)
  Receive Date: 20081009
  Receipt Date: 20080926
  Transmission Date: 20090506
  Serious: Yes (Life-Threatening, Hospitalization, Other)
  Sender: FDA-Public Use
  Company Number: 1000001207

PATIENT
  Sex: Male
  Weight: 70 kg

DRUGS (24)
  1. CITALOPRAM HYDROBROMIDE [Suspect]
     Indication: DEPRESSION
     Dosage: 20 MG (20 MG, 1 IN 1 D), ORAL
     Route: 048
     Dates: start: 20080108, end: 20080202
  2. ESCITALOPRAM OXALATE [Suspect]
     Indication: DEPRESSION
     Dosage: 20-40 MG (1 IN 1 D), ORAL
     Route: 048
     Dates: start: 20080203, end: 20080319
  3. CITALOPRAM HYDROBROMIDE [Suspect]
     Indication: DEPRESSION
     Dosage: 20-40 MG (1 IN 1 D), ORAL
     Route: 048
     Dates: start: 20080320, end: 20080402
  4. FLUXET (20 MILLIGRAM, TABLETS) [Suspect]
     Indication: DEPRESSION
     Dosage: 20 MG (20 MG, 1 IN 1 D), ORAL
     Route: 048
     Dates: start: 20080320, end: 20080402
  5. URBASON (TABLETS) [Concomitant]
  6. CALCIUMACETAT [Concomitant]
  7. ROCALTROL [Concomitant]
  8. DYNEPO [Concomitant]
  9. FLUVASTATIN [Concomitant]
  10. FUROSEMID [Concomitant]
  11. MADOPAR [Concomitant]
  12. METOPROLOL SUCCINATE [Concomitant]
  13. CELLCEPT [Concomitant]
  14. NIFEDIPINE [Concomitant]
  15. AMLODIPINE [Concomitant]
  16. PANTOZOL [Concomitant]
  17. RAMIPRIL [Concomitant]
  18. RENAGEL [Concomitant]
  19. RANITIDINE HCL [Concomitant]
  20. MIMPARA [Concomitant]
  21. ACETAMINOPHEN [Concomitant]
  22. FAMOTIDINE [Concomitant]
  23. ROCEPHIN [Concomitant]
  24. METOPROLOL RETARD [Concomitant]

REACTIONS (2)
  - LONG QT SYNDROME [None]
  - VENTRICULAR FIBRILLATION [None]
